FAERS Safety Report 19795146 (Version 1)
Quarter: 2021Q3

REPORT INFORMATION
  Report Type: Spontaneous
  Country: US (occurrence: US)
  Receive Date: 20210901
  Receipt Date: 20210901
  Transmission Date: 20211014
  Serious: Yes (Disabling, Other)
  Sender: FDA-Public Use
  Company Number: None

PATIENT
  Age: 66 Year
  Sex: Male

DRUGS (4)
  1. RUGIET (TADALAFIL COMPONENT) [Suspect]
     Active Substance: TADALAFIL
  2. SILDENAFIL. [Suspect]
     Active Substance: SILDENAFIL
  3. RUGIET (SILDENAFIL COMPONENT) [Suspect]
     Active Substance: SILDENAFIL
  4. TADALAFIL. [Suspect]
     Active Substance: TADALAFIL

REACTIONS (1)
  - Grip strength decreased [None]

NARRATIVE: CASE EVENT DATE: 20210801
